FAERS Safety Report 9238255 (Version 1)
Quarter: 2013Q2

REPORT INFORMATION
  Report Type: Spontaneous
  Country: GB (occurrence: None)
  Receive Date: 20130416
  Receipt Date: 20130416
  Transmission Date: 20140414
  Serious: Yes (Hospitalization)
  Sender: FDA-Public Use
  Company Number: 147502

PATIENT
  Age: 37 Year
  Sex: Male

DRUGS (1)
  1. CISPLATIN [Suspect]
     Indication: RETROPERITONEAL NEOPLASM

REACTIONS (2)
  - Ischaemic stroke [None]
  - Carotid artery dissection [None]
